FAERS Safety Report 6921895-3 (Version None)
Quarter: 2010Q3

REPORT INFORMATION
  Report Type: 
  Country: None (occurrence: None)
  Receive Date: 20100812
  Receipt Date: 20100809
  Transmission Date: 20110219
  Serious: Yes (Life-Threatening)
  Sender: FDA-Public Use
  Company Number: US-ROXANE LABORATORIES, INC.-2010-RO-01014RO

PATIENT

DRUGS (1)
  1. DEXAMETHASONE [Suspect]
     Indication: FOETAL CARDIAC DISORDER
     Route: 064

REACTIONS (4)
  - DRUG INEFFECTIVE [None]
  - FOETAL DISORDER [None]
  - FOETAL GROWTH RESTRICTION [None]
  - FOETAL HYPOKINESIA [None]
